FAERS Safety Report 4600059-2 (Version None)
Quarter: 2005Q1

REPORT INFORMATION
  Report Type: 
  Country: None (occurrence: None)
  Receive Date: 20050303
  Receipt Date: 20050216
  Transmission Date: 20050727
  Serious: Yes (Death, Other)
  Sender: FDA-Public Use
  Company Number: EWC050242479

PATIENT
  Age: 17 Year
  Sex: Male
  Weight: 75 kg

DRUGS (2)
  1. XIGRIS [Suspect]
     Indication: SEPTIC SHOCK
     Dosage: 24 UG/KG/HR
     Dates: start: 20050106, end: 20050109
  2. HYDROCORTISONE [Concomitant]

REACTIONS (14)
  - ACTIVATED PARTIAL THROMBOPLASTIN TIME PROLONGED [None]
  - ADRENAL CORTEX NECROSIS [None]
  - ADRENAL HAEMORRHAGE [None]
  - BLOOD FIBRINOGEN DECREASED [None]
  - BRAIN DEATH [None]
  - CEREBRAL HAEMORRHAGE [None]
  - MEDICATION ERROR [None]
  - NERVOUS SYSTEM DISORDER [None]
  - PETECHIAE [None]
  - PLATELET COUNT DECREASED [None]
  - PROTHROMBIN LEVEL INCREASED [None]
  - PURPURA FULMINANS [None]
  - SUBARACHNOID HAEMORRHAGE [None]
  - UNRESPONSIVE TO PAIN STIMULI [None]
